FAERS Safety Report 4918147-X (Version None)
Quarter: 2006Q1

REPORT INFORMATION
  Report Type: 
  Country: None (occurrence: None)
  Receive Date: 20060221
  Receipt Date: 20051104
  Transmission Date: 20060701
  Serious: Yes (Hospitalization, Disabling, Other)
  Sender: FDA-Public Use
  Company Number: US-MERCK-0511USA00765

PATIENT
  Age: 57 Year
  Sex: Male
  Weight: 91 kg

DRUGS (23)
  1. VIOXX [Suspect]
     Indication: PAIN
     Route: 048
     Dates: start: 20030115, end: 20031011
  2. VIOXX [Suspect]
     Route: 048
     Dates: start: 20031011, end: 20040901
  3. LEVOXYL [Concomitant]
     Indication: THYROID DISORDER
     Route: 065
  4. SYNTHROID [Concomitant]
     Indication: THYROID DISORDER
     Route: 065
  5. VICODIN [Concomitant]
     Route: 065
  6. ASPIRIN [Concomitant]
     Indication: ISCHAEMIC HEART DISEASE PROPHYLAXIS
     Route: 065
     Dates: start: 20031027
  7. ATENOLOL [Concomitant]
     Indication: HYPERTENSION
     Route: 065
     Dates: start: 20031027
  8. PRAVACHOL [Concomitant]
     Indication: BLOOD CHOLESTEROL
     Route: 065
     Dates: start: 20031027, end: 20040101
  9. LISINOPRIL [Concomitant]
     Indication: HYPERTENSION
     Route: 065
     Dates: start: 20031027
  10. PLAVIX [Concomitant]
     Indication: THROMBOSIS PROPHYLAXIS
     Route: 065
     Dates: start: 20041001
  11. PLAVIX [Concomitant]
     Indication: MYOCARDIAL INFARCTION
     Route: 065
     Dates: start: 20041001
  12. IMDUR [Concomitant]
     Indication: ANGINA PECTORIS
     Route: 065
     Dates: start: 20040101
  13. COREG [Concomitant]
     Indication: HYPERTENSION
     Route: 065
     Dates: start: 20040101, end: 20040801
  14. SPIRONOLACTONE [Concomitant]
     Indication: HYPERTENSION
     Route: 065
     Dates: start: 20040101
  15. HYDROCODONE BITARTRATE [Concomitant]
     Indication: ANALGESIC EFFECT
     Route: 065
     Dates: start: 20040101, end: 20040501
  16. [THERAPY UNSPECIFIED] [Concomitant]
     Route: 065
     Dates: start: 20040401, end: 20040501
  17. GLUCOPHAGE [Concomitant]
     Indication: DIABETES MELLITUS
     Route: 065
  18. LIPITOR [Concomitant]
     Indication: BLOOD CHOLESTEROL
     Route: 065
     Dates: start: 20040501
  19. PROTONIX [Concomitant]
     Indication: GASTROOESOPHAGEAL REFLUX DISEASE
     Route: 065
  20. LASIX [Concomitant]
     Indication: HYPERTENSION
     Route: 065
     Dates: start: 20040617
  21. ALDACTONE [Concomitant]
     Indication: HYPERTENSION
     Route: 065
     Dates: start: 20040101
  22. VIOXX [Suspect]
     Indication: ARTHRITIS
     Route: 048
     Dates: start: 20030115, end: 20031011
  23. VIOXX [Suspect]
     Route: 048
     Dates: start: 20031011, end: 20040901

REACTIONS (12)
  - ANGINA PECTORIS [None]
  - BLOOD CHOLESTEROL ABNORMAL [None]
  - CHEST PAIN [None]
  - CORONARY ARTERIAL STENT INSERTION [None]
  - CORONARY ARTERY DISEASE [None]
  - DIABETES MELLITUS [None]
  - HYPERTENSION [None]
  - MUSCULOSKELETAL DISCOMFORT [None]
  - MYOCARDIAL INFARCTION [None]
  - ROAD TRAFFIC ACCIDENT [None]
  - ROTATOR CUFF SYNDROME [None]
  - THYROID DISORDER [None]
